FAERS Safety Report 5275315-8 (Version None)
Quarter: 2007Q1

REPORT INFORMATION
  Report Type: 
  Country: None (occurrence: None)
  Receive Date: 20070326
  Receipt Date: 20070316
  Transmission Date: 20070707
  Serious: Yes (Other)
  Sender: FDA-Public Use
  Company Number: DE-AVENTIS-200710713DE

PATIENT
  Sex: Male

DRUGS (3)
  1. CLEXANE [Suspect]
     Dosage: DOSE: NOT REPORTED
  2. CLEXANE [Suspect]
     Dosage: DOSE: NOT REPORTED
  3. CLEXANE [Suspect]
     Dosage: DOSE: NOT REPORTED

REACTIONS (1)
  - ISCHAEMIC STROKE [None]
